FAERS Safety Report 8606682-2 (Version None)
Quarter: 2012Q3

REPORT INFORMATION
  Report Type: 
  Country: None (occurrence: None)
  Receive Date: 20120820
  Receipt Date: 20120813
  Transmission Date: 20120928
  Serious: Yes (Other)
  Sender: FDA-Public Use
  Company Number: TR-ELI_LILLY_AND_COMPANY-TR201208004121

PATIENT
  Sex: Female
  Weight: 78 kg

DRUGS (2)
  1. HUMULIN N [Suspect]
     Indication: GESTATIONAL DIABETES
     Dosage: 6 IU, QD
     Route: 058
     Dates: start: 20120601
  2. HUMALOG [Suspect]
     Indication: GESTATIONAL DIABETES
     Dosage: 4 IU, TID
     Route: 058
     Dates: start: 20120601

REACTIONS (3)
  - HYPERGLYCAEMIA [None]
  - WRONG DRUG ADMINISTERED [None]
  - MATERNAL EXPOSURE DURING PREGNANCY [None]
